FAERS Safety Report 5153821-4 (Version None)
Quarter: 2006Q4

REPORT INFORMATION
  Report Type: 
  Country: None (occurrence: None)
  Receive Date: 20061120
  Receipt Date: 20060925
  Transmission Date: 20070319
  Serious: Yes (Other)
  Sender: FDA-Public Use
  Company Number: 2006CG01576

PATIENT
  Age: 766 Month
  Sex: Male
  Weight: 65 kg

DRUGS (5)
  1. SYMBICORT [Suspect]
     Indication: ASTHMA
     Dosage: 160/4.5 ?G, ONE INHALATION BID
     Route: 055
     Dates: start: 20010101
  2. SYMBICORT [Suspect]
     Dosage: 160/4.5 ?G, ONE INHALATION PER DAY
     Route: 055
     Dates: end: 20060101
  3. PULMICORT [Concomitant]
     Indication: ASTHMA
     Route: 055
     Dates: start: 19971201, end: 20010101
  4. BRICANYL [Concomitant]
     Indication: ASTHMA
     Dates: start: 19971201, end: 20010101
  5. BECLORHINOL [Concomitant]
     Indication: RHINITIS
     Dates: start: 20000101

REACTIONS (3)
  - ALOPECIA AREATA [None]
  - DRUG INEFFECTIVE [None]
  - LUPUS-LIKE SYNDROME [None]
